FAERS Safety Report 6765147-3 (Version None)
Quarter: 2010Q2

REPORT INFORMATION
  Report Type: 
  Country: None (occurrence: None)
  Receive Date: 20100610
  Receipt Date: 20100603
  Transmission Date: 20101027
  Serious: Yes (Other)
  Sender: FDA-Public Use
  Company Number: US-AMGEN-QUU416377

PATIENT
  Sex: Female

DRUGS (2)
  1. NPLATE [Suspect]
     Indication: IDIOPATHIC THROMBOCYTOPENIC PURPURA
     Dates: start: 20100504, end: 20100602
  2. CORTICOSTEROIDS [Concomitant]
     Dates: start: 20100401

REACTIONS (2)
  - DRUG INEFFECTIVE [None]
  - MYELODYSPLASTIC SYNDROME TRANSFORMATION [None]
